FAERS Safety Report 17448647 (Version 1)
Quarter: 2020Q1

REPORT INFORMATION
  Report Type: Spontaneous
  Country: US (occurrence: US)
  Receive Date: 20200224
  Receipt Date: 20200224
  Transmission Date: 20200409
  Serious: Yes (Hospitalization)
  Sender: FDA-Public Use
  Company Number: US-LEADING PHARMA LLC-US-2020LEALIT00024

PATIENT
  Age: 2 Month
  Sex: Male

DRUGS (1)
  1. GLYCOPYRROLATE TABLETS USP [Suspect]
     Active Substance: GLYCOPYRROLATE

REACTIONS (3)
  - Pupils unequal [Recovered/Resolved]
  - Accidental exposure to product [Recovered/Resolved]
  - Mydriasis [Recovered/Resolved]
